FAERS Safety Report 8156936-1 (Version None)
Quarter: 2012Q1

REPORT INFORMATION
  Report Type: 
  Country: None (occurrence: None)
  Receive Date: 20120222
  Receipt Date: 20120213
  Transmission Date: 20120608
  Serious: Yes (Hospitalization)
  Sender: FDA-Public Use
  Company Number: FR-VERTEX PHARMACEUTICALS INC.-000000000000000236

PATIENT
  Age: 62 Year
  Sex: Male

DRUGS (3)
  1. INCIVO (TELAPREVIR) [Suspect]
     Indication: HEPATITIS C
     Dosage: DOSAGE FORM: TABLET
     Route: 048
     Dates: start: 20120201, end: 20120213
  2. PEG-INTRON [Concomitant]
     Indication: HEPATITIS C
  3. RIBAVIRINE [Concomitant]
     Indication: HEPATITIS C

REACTIONS (1)
  - RASH [None]
